FAERS Safety Report 8854166 (Version 2)
Quarter: 2012Q4

REPORT INFORMATION
  Report Type: 
  Country: FR (occurrence: FR)
  Receive Date: 20121022
  Receipt Date: 20121107
  Transmission Date: 20130627
  Serious: Yes (Hospitalization)
  Sender: FDA-Public Use
  Company Number: FR-BRISTOL-MYERS SQUIBB COMPANY-17037201

PATIENT
  Age: 81 Year
  Sex: Female

DRUGS (7)
  1. COUMADIN TABS 2 MG [Suspect]
     Dosage: Scored Tablet
     Route: 048
     Dates: end: 20120906
  2. TEMERIT [Concomitant]
  3. TAHOR [Concomitant]
  4. CORDARONE [Concomitant]
  5. LEVOTHYROX [Concomitant]
  6. RENAGEL [Concomitant]
  7. AMLOR [Concomitant]

REACTIONS (4)
  - Fall [Unknown]
  - Haematoma [Not Recovered/Not Resolved]
  - Hyperkalaemia [Recovered/Resolved]
  - Haemoglobin decreased [Unknown]
